FAERS Safety Report 5585343-0 (Version None)
Quarter: 2008Q1

REPORT INFORMATION
  Report Type: 
  Country: None (occurrence: None)
  Receive Date: 20080104
  Receipt Date: 20080104
  Transmission Date: 20080703
  Serious: Yes (Death)
  Sender: FDA-Public Use
  Company Number: None

PATIENT
  Age: 48 Year
  Sex: Male
  Weight: 150 kg

DRUGS (14)
  1. ENOXAPARIN SODIUM [Suspect]
     Indication: DEEP VEIN THROMBOSIS
     Dosage: 140MG SQ BID 11/15 9PM AND 11/16 9AM
     Route: 058
     Dates: start: 20071115
  2. ENOXAPARIN SODIUM [Suspect]
     Indication: DEEP VEIN THROMBOSIS
     Dosage: 140MG SQ BID 11/15 9PM AND 11/16 9AM
     Route: 058
     Dates: start: 20071116
  3. AMLODIPINE [Concomitant]
  4. ATORVASTATIN [Concomitant]
  5. DEXAMETHASONE TAB [Concomitant]
  6. EZETIMIBE [Concomitant]
  7. INSULIN ASPART [Concomitant]
  8. LANSOPRAZOLE [Concomitant]
  9. METOPROLOL [Concomitant]
  10. SENNA [Concomitant]
  11. APAP TAB [Concomitant]
  12. CEFTRIAXONE [Concomitant]
  13. MANNITOL [Concomitant]
  14. HYPERTONIC SALINE [Concomitant]

REACTIONS (3)
  - BRAIN DEATH [None]
  - CEREBRAL HAEMORRHAGE [None]
  - LOSS OF CONSCIOUSNESS [None]
